APPROVED DRUG PRODUCT: CLOTRIMAZOLE
Active Ingredient: CLOTRIMAZOLE
Strength: 10MG
Dosage Form/Route: TROCHE/LOZENGE;ORAL
Application: A076763 | Product #001 | TE Code: AB
Applicant: PADAGIS US LLC
Approved: Oct 28, 2005 | RLD: No | RS: No | Type: RX